FAERS Safety Report 15287318 (Version 2)
Quarter: 2018Q3

REPORT INFORMATION
  Report Type: Spontaneous
  Country: US (occurrence: US)
  Receive Date: 20180817
  Receipt Date: 20180910
  Transmission Date: 20181010
  Serious: Yes (Hospitalization, Other)
  Sender: FDA-Public Use
  Company Number: US-AUROBINDO-AUR-APL-2018-040768

PATIENT
  Age: 52 Year
  Sex: Male

DRUGS (7)
  1. CLOZAPINE. [Interacting]
     Active Substance: CLOZAPINE
     Dosage: 600 MILLIGRAM, DAILY AT BEDTIME
     Route: 065
  2. VALPROATE SEMISODIUM [Concomitant]
     Active Substance: DIVALPROEX SODIUM
     Indication: PRODUCT USED FOR UNKNOWN INDICATION
     Dosage: 1500 MILLIGRAM, DAILY, EXTENDED?RELEASE AT BEDTIME
     Route: 065
  3. DOCUSATE SODIUM. [Concomitant]
     Active Substance: DOCUSATE SODIUM
     Indication: PRODUCT USED FOR UNKNOWN INDICATION
     Dosage: 100 MILLIGRAM, Q12H
     Route: 065
  4. METOPROLOL SUCCINATE. [Concomitant]
     Active Substance: METOPROLOL SUCCINATE
     Indication: PRODUCT USED FOR UNKNOWN INDICATION
     Dosage: 100 MILLIGRAM, DAILY
     Route: 065
  5. ATROPINE SULFATE. [Concomitant]
     Active Substance: ATROPINE SULFATE
     Indication: PRODUCT USED FOR UNKNOWN INDICATION
     Dosage: UNK, DROPS, AT BEDTIME
     Route: 060
  6. ARIPIPRAZOLE. [Concomitant]
     Active Substance: ARIPIPRAZOLE
     Indication: SCHIZOAFFECTIVE DISORDER BIPOLAR TYPE
     Dosage: UNK
     Route: 065
  7. CLOZAPINE. [Suspect]
     Active Substance: CLOZAPINE
     Indication: SCHIZOAFFECTIVE DISORDER BIPOLAR TYPE
     Dosage: 550 MILLIGRAM, DAILY AT BEDTIME
     Route: 065

REACTIONS (11)
  - Drug interaction [Unknown]
  - Blood creatinine increased [Unknown]
  - Somnolence [Unknown]
  - Disturbance in attention [Unknown]
  - Drug level increased [Recovered/Resolved]
  - Paranoia [Unknown]
  - Toxicity to various agents [Unknown]
  - Apathy [Unknown]
  - Hypersomnia [Unknown]
  - Anxiety [Unknown]
  - Asthenia [Unknown]
